FAERS Safety Report 19067183 (Version 1)
Quarter: 2021Q1

REPORT INFORMATION
  Report Type: Spontaneous
  Country: FR (occurrence: FR)
  Receive Date: 20210329
  Receipt Date: 20210329
  Transmission Date: 20210420
  Serious: Yes (Hospitalization)
  Sender: FDA-Public Use
  Company Number: FR-ROCHE-2790222

PATIENT
  Age: 21 Year
  Sex: Female

DRUGS (5)
  1. VALIUM [Suspect]
     Active Substance: DIAZEPAM
     Indication: INTENTIONAL OVERDOSE
     Dosage: NP
     Route: 048
     Dates: start: 20210207, end: 20210207
  2. ZOPICLONE [Suspect]
     Active Substance: ZOPICLONE
     Indication: INTENTIONAL OVERDOSE
     Route: 048
     Dates: start: 20210207, end: 20210207
  3. NOZINAN [Suspect]
     Active Substance: LEVOMEPROMAZINE
     Indication: INTENTIONAL OVERDOSE
     Dosage: NP
     Route: 048
     Dates: start: 20210207, end: 20210207
  4. TERCIAN [Suspect]
     Active Substance: CYAMEMAZINE
     Indication: INTENTIONAL OVERDOSE
     Route: 048
     Dates: start: 20210207, end: 20210207
  5. SERESTA [Suspect]
     Active Substance: OXAZEPAM
     Indication: INTENTIONAL OVERDOSE
     Route: 048
     Dates: start: 20210207, end: 20210207

REACTIONS (2)
  - Somnolence [Recovered/Resolved]
  - Poisoning deliberate [Recovered/Resolved]

NARRATIVE: CASE EVENT DATE: 20210207
